FAERS Safety Report 17524644 (Version 1)
Quarter: 2020Q1

REPORT INFORMATION
  Report Type: Spontaneous
  Country: PL (occurrence: PL)
  Receive Date: 20200310
  Receipt Date: 20200310
  Transmission Date: 20200409
  Serious: Yes (Hospitalization)
  Sender: FDA-Public Use
  Company Number: PL-MYLANLABS-2020M1025368

PATIENT
  Age: 63 Year
  Sex: Male

DRUGS (5)
  1. PREGABALIN. [Suspect]
     Active Substance: PREGABALIN
     Indication: BREAKTHROUGH PAIN
     Dosage: 75 MILLIGRAM, BID
     Route: 065
  2. MORPHINE [Suspect]
     Active Substance: MORPHINE
     Indication: BREAKTHROUGH PAIN
     Dosage: 10 MILLIGRAM
     Route: 058
  3. OXYCODONE [Suspect]
     Active Substance: OXYCODONE
     Dosage: 40 MILLIGRAM, BID
     Route: 065
  4. OXYCODONE [Suspect]
     Active Substance: OXYCODONE
     Indication: PAIN
     Dosage: 80 MILLIGRAM, DAILY(TWO DIVIDED DOSES)
     Route: 065
  5. OXYCODONE [Suspect]
     Active Substance: OXYCODONE
     Dosage: 120 MILLIGRAM, QD (120 MG, DAILY (TWO DIVIDED DOSES))
     Route: 065

REACTIONS (6)
  - Nausea [Unknown]
  - Tremor [Recovered/Resolved]
  - Dysarthria [Unknown]
  - Dry mouth [Unknown]
  - Drug ineffective [Unknown]
  - Somnolence [Recovering/Resolving]
